FAERS Safety Report 5815387-2 (Version None)
Quarter: 2008Q3

REPORT INFORMATION
  Report Type: 
  Country: None (occurrence: None)
  Receive Date: 20080718
  Receipt Date: 20080707
  Transmission Date: 20090109
  Serious: Yes (Life-Threatening, Hospitalization)
  Sender: FDA-Public Use
  Company Number: CA-PFIZER INC-2008050303

PATIENT
  Sex: Male
  Weight: 77.1 kg

DRUGS (7)
  1. LYRICA [Suspect]
     Indication: PHANTOM PAIN
     Route: 048
     Dates: start: 20080408, end: 20080401
  2. LYRICA [Suspect]
     Indication: NEURALGIA
  3. ADALAT [Concomitant]
  4. AVAPRO [Concomitant]
  5. TRIAMTERENE AND HYDROCHLOROTHIAZIDE [Concomitant]
  6. MORPHINE [Concomitant]
  7. PARIET [Concomitant]

REACTIONS (3)
  - RENAL FAILURE [None]
  - RESPIRATORY FAILURE [None]
  - RHABDOMYOLYSIS [None]
